FAERS Safety Report 12099354 (Version 1)
Quarter: 2016Q1

REPORT INFORMATION
  Report Type: Spontaneous
  Country: US (occurrence: None)
  Receive Date: 20160219
  Receipt Date: 20160219
  Transmission Date: 20160526
  Serious: No
  Sender: FDA-Public Use
  Company Number: None

PATIENT
  Age: 60 Year
  Sex: Male

DRUGS (1)
  1. HUMIRA [Suspect]
     Active Substance: ADALIMUMAB
     Dosage: 1 PEN (40MG) EVERY 2 WEEKS SUBCUTANEOUS INJECTION
     Route: 058
     Dates: start: 20151229, end: 20160217

REACTIONS (2)
  - Therapy cessation [None]
  - Unevaluable event [None]

NARRATIVE: CASE EVENT DATE: 20160217
